FAERS Safety Report 22868560 (Version 5)
Quarter: 2023Q4

REPORT INFORMATION
  Report Type: Report from Study
  Country: CN (occurrence: CN)
  Receive Date: 20230825
  Receipt Date: 20231122
  Transmission Date: 20240109
  Serious: Yes (Hospitalization)
  Sender: FDA-Public Use
  Company Number: CN-PFIZER INC-PV202300143114

PATIENT
  Age: 74 Year
  Sex: Female
  Weight: 53.7 kg

DRUGS (10)
  1. PALBOCICLIB [Suspect]
     Active Substance: PALBOCICLIB
     Indication: Breast cancer metastatic
     Dosage: 125 MG, 1 IN 1 D, ON 01MAY2023 MOST RECENT DOSE OF STUDY DRUG 2.5 MG WAS GIVEN PRIOR TO AE, ON 08MAY
     Route: 048
     Dates: start: 20230310
  2. LETROZOLE [Suspect]
     Active Substance: LETROZOLE
     Indication: Breast cancer metastatic
     Dosage: UNK, 1 IN 1 D, ON 01MAY2023 MOST RECENT DOSE OF STUDY DRUG WAS GIVEN PRIOR TO AE, ON 08MAY2023 MOST
     Route: 048
     Dates: start: 20230310
  3. PLACEBO [Suspect]
     Active Substance: UNSPECIFIED INGREDIENT
     Indication: Breast cancer metastatic
     Dosage: UNK, 1 IN 1 D, ON 01MAY2023 MOST RECENT DOSE OF STUDY DRUG WAS GIVEN PRIOR TO AE, ON 08MAY2023 MOST
     Route: 048
     Dates: start: 20230310
  4. PLACEBO [Suspect]
     Active Substance: UNSPECIFIED INGREDIENT
     Dosage: UNK, 1 IN 1 D, ON 01MAY2023 MOST RECENT DOSE OF STUDY DRUG WAS GIVEN PRIOR TO AE, ON 08MAY2023 MOST
     Route: 048
     Dates: start: 20230501
  5. FILGRASTIM [Concomitant]
     Active Substance: FILGRASTIM
     Indication: Neutropenia
     Dosage: 0.2 MG, 1 IN 1 D
     Route: 058
     Dates: start: 20230407, end: 20230408
  6. FILGRASTIM [Concomitant]
     Active Substance: FILGRASTIM
     Indication: Leukopenia
     Dosage: 0.2 MG, 1 IN 1 D
     Route: 058
     Dates: start: 20230508, end: 20230510
  7. FILGRASTIM [Concomitant]
     Active Substance: FILGRASTIM
     Dosage: 0.2 MG, 1 IN 1 D
     Route: 058
     Dates: start: 20230607, end: 20230608
  8. BUDESONIDE [Concomitant]
     Active Substance: BUDESONIDE
     Indication: Asthma
     Dosage: 1 IN 1 AS REQUIRED
     Route: 045
     Dates: start: 2022, end: 20230507
  9. OXYGEN [Concomitant]
     Active Substance: OXYGEN
     Indication: Hypoxia
     Dosage: UNK
     Dates: start: 20230508, end: 20230510
  10. LEVOFLOXACIN [Concomitant]
     Active Substance: LEVOFLOXACIN
     Dosage: 1 IN 1 D
     Route: 048
     Dates: start: 20230510, end: 20230512

REACTIONS (1)
  - Dyspnoea [Recovered/Resolved]

NARRATIVE: CASE EVENT DATE: 20230508
